FAERS Safety Report 11208839 (Version 1)
Quarter: 2015Q2

REPORT INFORMATION
  Report Type: Spontaneous
  Country: US (occurrence: US)
  Receive Date: 20150622
  Receipt Date: 20150622
  Transmission Date: 20150821
  Serious: No
  Sender: FDA-Public Use
  Company Number: US-TAKEDA-2011-06103

PATIENT
  Age: 62 Year
  Weight: 94.79 kg

DRUGS (1)
  1. VELCADE [Suspect]
     Active Substance: BORTEZOMIB
     Indication: PRODUCT USED FOR UNKNOWN INDICATION
     Dosage: 2.7 MG, CYCLIC
     Route: 058
     Dates: start: 20111102, end: 20111115

REACTIONS (2)
  - Injection site reaction [Recovered/Resolved]
  - Product use issue [None]

NARRATIVE: CASE EVENT DATE: 20111115
